FAERS Safety Report 17842438 (Version 2)
Quarter: 2020Q2

REPORT INFORMATION
  Report Type: Spontaneous
  Country: ES (occurrence: ES)
  Receive Date: 20200529
  Receipt Date: 20200609
  Transmission Date: 20200714
  Serious: Yes (Hospitalization, Other)
  Sender: FDA-Public Use
  Company Number: ES-INCYTE CORPORATION-2020IN004821

PATIENT

DRUGS (9)
  1. JAKAVI [Suspect]
     Active Substance: RUXOLITINIB
     Indication: SPLENOMEGALY
     Dosage: 10 MG, Q12H
     Route: 048
  2. JAKAVI [Suspect]
     Active Substance: RUXOLITINIB
     Indication: POLYCYTHAEMIA VERA
     Dosage: 5 MG, Q12H
     Route: 048
     Dates: start: 20191030
  3. HIBOR [Concomitant]
     Indication: ANTICOAGULANT THERAPY
     Dosage: 10.000 IU, Q24H
     Route: 065
  4. CARVEDILOL. [Concomitant]
     Active Substance: CARVEDILOL
     Indication: PRODUCT USED FOR UNKNOWN INDICATION
     Dosage: 6.25 MG, BID
     Route: 065
  5. JAKAVI [Suspect]
     Active Substance: RUXOLITINIB
     Dosage: 5 MG, Q24H
     Route: 048
     Dates: start: 20200527
  6. JAKAVI [Suspect]
     Active Substance: RUXOLITINIB
     Dosage: 5 MG, Q12H
     Route: 048
  7. OMEPRAZOLE. [Concomitant]
     Active Substance: OMEPRAZOLE
     Indication: PRODUCT USED FOR UNKNOWN INDICATION
     Dosage: 1 DF, QD
     Route: 065
  8. METFORMIN [Concomitant]
     Active Substance: METFORMIN HYDROCHLORIDE
     Indication: PRODUCT USED FOR UNKNOWN INDICATION
     Dosage: 850 MG, BID
     Route: 065
  9. ACYCLOVIR [ACICLOVIR] [Concomitant]
     Active Substance: ACYCLOVIR
     Indication: PRODUCT USED FOR UNKNOWN INDICATION
     Dosage: 800 MG, Q24H
     Route: 065

REACTIONS (21)
  - Ascites [Recovered/Resolved]
  - Disorientation [Recovered/Resolved]
  - Varices oesophageal [Unknown]
  - Portal vein thrombosis [Unknown]
  - Discomfort [Recovered/Resolved]
  - Speech disorder [Recovered/Resolved]
  - Asthenia [Recovered/Resolved]
  - Myeloproliferative neoplasm [Unknown]
  - Decreased appetite [Recovered/Resolved]
  - Colitis ischaemic [Unknown]
  - Amnesia [Recovered/Resolved]
  - Portal hypertension [Unknown]
  - General physical condition abnormal [Recovered/Resolved]
  - Hepatomegaly [Unknown]
  - Thrombosis mesenteric vessel [Unknown]
  - Gait disturbance [Recovered/Resolved]
  - Confusional state [Recovered/Resolved]
  - Thrombocytopenia [Unknown]
  - Peritoneal tuberculosis [Recovered/Resolved]
  - Weight decreased [Recovered/Resolved]
  - Pyrexia [Recovered/Resolved]
